FAERS Safety Report 9909675 (Version 1)
Quarter: 2014Q1

REPORT INFORMATION
  Report Type: Report from Study
  Country: US (occurrence: US)
  Receive Date: 20140219
  Receipt Date: 20140219
  Transmission Date: 20141002
  Serious: Yes (Other)
  Sender: FDA-Public Use
  Company Number: US-ABBVIE-14P-163-1200848-00

PATIENT
  Sex: Female
  Weight: 88.98 kg

DRUGS (16)
  1. HUMIRA [Suspect]
     Indication: PSORIASIS
     Dates: start: 2011
  2. HUMIRA [Suspect]
     Indication: PSORIATIC ARTHROPATHY
  3. PLAVIX [Concomitant]
     Indication: CAROTID ENDARTERECTOMY
  4. TRICOR [Concomitant]
     Indication: BLOOD CHOLESTEROL INCREASED
  5. METOPROLOL [Concomitant]
     Indication: HYPERTENSION
  6. CELEBREX [Concomitant]
     Indication: ARTHRALGIA
  7. CELEBREX [Concomitant]
     Indication: PSORIATIC ARTHROPATHY
  8. HYDROCHLOROTHIAZIDE [Concomitant]
     Indication: HYPERTENSION
  9. VITAMIN B6 [Concomitant]
     Indication: VITAMIN SUPPLEMENTATION
  10. DIOVAN [Concomitant]
     Indication: HYPERTENSION
  11. PROTONIX [Concomitant]
     Indication: HIATUS HERNIA
  12. ASPIRIN [Concomitant]
     Indication: CARDIAC DISORDER
  13. CLIMARA [Concomitant]
     Indication: HORMONE REPLACEMENT THERAPY
     Dosage: PATCH
  14. IMDUR [Concomitant]
     Indication: PRODUCT USED FOR UNKNOWN INDICATION
  15. ERYTHROMYCIN [Concomitant]
     Indication: IMPAIRED GASTRIC EMPTYING
  16. UNNAMED EYE DROPS [Concomitant]
     Indication: DRY EYE

REACTIONS (6)
  - Chondropathy [Recovered/Resolved]
  - Pancreatic cyst [Not Recovered/Not Resolved]
  - Precancerous cells present [Not Recovered/Not Resolved]
  - Diabetes mellitus [Not Recovered/Not Resolved]
  - Intraductal papillary mucinous neoplasm [Not Recovered/Not Resolved]
  - Chondropathy [Not Recovered/Not Resolved]
